FAERS Safety Report 20596693 (Version 1)
Quarter: 2022Q1

REPORT INFORMATION
  Report Type: Spontaneous
  Country: US (occurrence: US)
  Receive Date: 20220315
  Receipt Date: 20220315
  Transmission Date: 20220423
  Serious: Yes (Other)
  Sender: FDA-Public Use
  Company Number: US-ABBVIE-22K-163-4315429-00

PATIENT
  Sex: Female

DRUGS (1)
  1. LUPRON DEPOT [Suspect]
     Active Substance: LEUPROLIDE ACETATE
     Indication: Polycystic ovaries
     Route: 030

REACTIONS (5)
  - Depression suicidal [Recovering/Resolving]
  - Off label use [Unknown]
  - Anxiety [Recovered/Resolved]
  - Therapeutic response unexpected [Unknown]
  - Malaise [Unknown]
